FAERS Safety Report 19210761 (Version 1)
Quarter: 2021Q2

REPORT INFORMATION
  Report Type: Spontaneous
  Country: US (occurrence: US)
  Receive Date: 20210503
  Receipt Date: 20210503
  Transmission Date: 20210717
  Serious: Yes (Death)
  Sender: FDA-Public Use
  Company Number: None

PATIENT
  Age: 81 Year
  Sex: Male
  Weight: 67.5 kg

DRUGS (1)
  1. KEYTRUDA [Suspect]
     Active Substance: PEMBROLIZUMAB
     Indication: BLADDER CANCER
     Dates: start: 20210101, end: 20210303

REACTIONS (8)
  - Visual impairment [None]
  - Muscular weakness [None]
  - Hallucination [None]
  - Bedridden [None]
  - Dysphagia [None]
  - Eyelid ptosis [None]
  - Myalgia [None]
  - Postictal headache [None]

NARRATIVE: CASE EVENT DATE: 20210220
